FAERS Safety Report 11502627 (Version 1)
Quarter: 2015Q3

REPORT INFORMATION
  Report Type: Spontaneous
  Country: US (occurrence: US)
  Receive Date: 20150914
  Receipt Date: 20150914
  Transmission Date: 20151125
  Serious: No
  Sender: FDA-Public Use
  Company Number: US-ASTELLAS-2015US022878

PATIENT
  Sex: Male

DRUGS (2)
  1. XTANDI [Suspect]
     Active Substance: ENZALUTAMIDE
     Indication: PROSTATE CANCER
     Route: 048
     Dates: start: 20150326
  2. XTANDI [Suspect]
     Active Substance: ENZALUTAMIDE
     Dosage: 2 DF (2 CAPSULES 40 MG), ONCE DAILY
     Route: 065

REACTIONS (3)
  - Nausea [Unknown]
  - Underdose [Unknown]
  - Drug dose omission [Unknown]
